FAERS Safety Report 8463036-X (Version None)
Quarter: 2012Q2

REPORT INFORMATION
  Report Type: 
  Country: None (occurrence: None)
  Receive Date: 20120323
  Receipt Date: 20111107
  Transmission Date: 20120825
  Serious: Yes (Hospitalization)
  Sender: FDA-Public Use
  Company Number: 163-21880-11111055

PATIENT
  Age: 71 Year
  Sex: Male

DRUGS (6)
  1. LENALIDOMIDE [Suspect]
     Indication: MULTIPLE MYELOMA
     Dosage: 10 MG, X 21 CAPS, PO
     Route: 048
     Dates: start: 20100924
  2. OXYCODONE HCL [Concomitant]
  3. NEURONTIN [Concomitant]
  4. ACYCLOVIR [Concomitant]
  5. ASPIRIN [Concomitant]
  6. HYDROCODONE - ACETAMINOPHEN (PROCET / USA/) [Concomitant]

REACTIONS (2)
  - BONE LESION [None]
  - PELVIC FRACTURE [None]
